FAERS Safety Report 4779682-0 (Version None)
Quarter: 2005Q3

REPORT INFORMATION
  Report Type: 
  Country: None (occurrence: None)
  Receive Date: 20050914
  Receipt Date: 20050430
  Transmission Date: 20060218
  Serious: Yes (Hospitalization)
  Sender: FDA-Public Use
  Company Number: 163-20785-04060298

PATIENT
  Age: 61 Year
  Sex: Female
  Weight: 64.1 kg

DRUGS (27)
  1. THALOMID [Suspect]
     Indication: MULTIPLE MYELOMA
     Dosage: 200 MG, QD, ORAL; DAILY, ORAL
     Route: 048
     Dates: start: 20040420, end: 20040423
  2. THALOMID [Suspect]
     Indication: MULTIPLE MYELOMA
     Dosage: 200 MG, QD, ORAL; DAILY, ORAL
     Route: 048
     Dates: start: 20050101
  3. DEXAMETHASONE [Suspect]
     Indication: MULTIPLE MYELOMA
     Dosage: 40 MG, QD, ORAL
     Route: 048
     Dates: start: 20040420, end: 20040423
  4. DEXAMETHASONE [Suspect]
     Indication: MULTIPLE MYELOMA
     Dosage: 40 MG, QD, ORAL
     Route: 048
     Dates: start: 20050101
  5. BORTEZOMIB (BORTEZOMIB) (UNKNOWN) [Suspect]
     Indication: MULTIPLE MYELOMA
     Dosage: SEE IMAGE
     Route: 042
     Dates: start: 20040420, end: 20040420
  6. BORTEZOMIB (BORTEZOMIB) (UNKNOWN) [Suspect]
     Indication: MULTIPLE MYELOMA
     Dosage: SEE IMAGE
     Route: 042
     Dates: start: 20040424, end: 20040424
  7. BORTEZOMIB (BORTEZOMIB) (UNKNOWN) [Suspect]
     Indication: MULTIPLE MYELOMA
     Dosage: SEE IMAGE
     Route: 042
     Dates: start: 20040427, end: 20040427
  8. BORTEZOMIB (BORTEZOMIB) (UNKNOWN) [Suspect]
     Indication: MULTIPLE MYELOMA
     Dosage: SEE IMAGE
     Route: 042
     Dates: start: 20040520, end: 20040520
  9. BORTEZOMIB (BORTEZOMIB) (UNKNOWN) [Suspect]
     Indication: MULTIPLE MYELOMA
     Dosage: SEE IMAGE
     Route: 042
     Dates: start: 20040523, end: 20040523
  10. BORTEZOMIB (BORTEZOMIB) (UNKNOWN) [Suspect]
     Indication: MULTIPLE MYELOMA
     Dosage: SEE IMAGE
     Route: 042
     Dates: start: 20040527, end: 20040527
  11. BORTEZOMIB (BORTEZOMIB) (UNKNOWN) [Suspect]
     Indication: MULTIPLE MYELOMA
     Dosage: SEE IMAGE
     Route: 042
     Dates: start: 20050101
  12. CISPLATIN [Suspect]
     Indication: MULTIPLE MYELOMA
     Dosage: SEE IMAGE
     Route: 042
     Dates: start: 20040420, end: 20040423
  13. ADRIAMYCIN PFS [Suspect]
     Indication: MULTIPLE MYELOMA
     Dosage: SEE IMAGE
     Route: 042
     Dates: start: 20040420, end: 20040423
  14. ADRIAMYCIN PFS [Suspect]
     Indication: MULTIPLE MYELOMA
     Dosage: SEE IMAGE
     Route: 042
     Dates: start: 20040523, end: 20040526
  15. CYCLOPHOSPHAMIDE [Suspect]
     Indication: MULTIPLE MYELOMA
     Dosage: SEE IMAGE
     Route: 042
     Dates: start: 20040420, end: 20040423
  16. ETOPOSIDE [Suspect]
     Indication: MULTIPLE MYELOMA
     Dosage: SEE IMAGE
     Route: 042
     Dates: start: 20040420, end: 20040423
  17. ACYCLOVIR [Concomitant]
  18. NEXIUM [Concomitant]
  19. DIFLUCAN [Concomitant]
  20. TEQUIN [Concomitant]
  21. FENTANYL CITRATE [Concomitant]
  22. ZYRTEC [Concomitant]
  23. PROCRIT [Concomitant]
  24. COLACE (DOCUSATE SODIUM) [Concomitant]
  25. SENNA [Concomitant]
  26. MS CONTIN [Concomitant]
  27. DOXORUBICIN [Concomitant]

REACTIONS (5)
  - DEHYDRATION [None]
  - DIARRHOEA [None]
  - PLATELET COUNT DECREASED [None]
  - PNEUMONIA [None]
  - SYNCOPE [None]
